FAERS Safety Report 4771482-0 (Version None)
Quarter: 2005Q3

REPORT INFORMATION
  Report Type: 
  Country: None (occurrence: None)
  Receive Date: 20050913
  Receipt Date: 20050913
  Transmission Date: 20060218
  Serious: Yes (Life-Threatening, Hospitalization)
  Sender: FDA-Public Use
  Company Number: None

PATIENT
  Sex: Male
  Weight: 96 kg

DRUGS (3)
  1. CARDIOPLEGIA SOLUTIONS 1, 2, AND 3 CENTRAL ADMIXTURE PHARMACY SERVICE [Suspect]
     Indication: CORONARY ARTERY DISEASE
     Dosage: 250ML, 500ML, 250ML ONE TIME IV
     Route: 042
     Dates: start: 20050908, end: 20050908
  2. STANDARD CABG [Concomitant]
  3. SIRS TREATMENT [Concomitant]

REACTIONS (6)
  - BACTERIAL INFECTION [None]
  - CULTURE POSITIVE [None]
  - PHARMACEUTICAL PRODUCT COMPLAINT [None]
  - POOR QUALITY DRUG ADMINISTERED [None]
  - POST PROCEDURAL COMPLICATION [None]
  - SYSTEMIC INFLAMMATORY RESPONSE SYNDROME [None]
